FAERS Safety Report 5959990-8 (Version None)
Quarter: 2008Q4

REPORT INFORMATION
  Report Type: 
  Country: None (occurrence: None)
  Receive Date: 20081120
  Receipt Date: 20081112
  Transmission Date: 20090506
  Serious: Yes (Other)
  Sender: FDA-Public Use
  Company Number: US-JNJFOC-20081103490

PATIENT
  Sex: Female
  Weight: 58.97 kg

DRUGS (8)
  1. FENTANYL TRANSDERMAL SYSTEM [Suspect]
     Indication: HEADACHE
     Route: 062
  2. FENTANYL TRANSDERMAL SYSTEM [Suspect]
     Indication: BACK PAIN
     Route: 062
  3. FENTANYL TRANSDERMAL SYSTEM [Suspect]
     Indication: ARTHRALGIA
     Route: 062
  4. CLONAZEPAM [Concomitant]
     Indication: SLEEP DISORDER THERAPY
     Route: 048
  5. CLONAZEPAM [Concomitant]
     Indication: ANXIETY
     Dosage: 3 TABLETS AT BED TIME
     Route: 048
  6. SEROQUEL [Concomitant]
     Indication: SLEEP DISORDER THERAPY
     Route: 048
  7. SEROQUEL [Concomitant]
     Indication: ANXIETY
     Route: 048
  8. HYDRO [Concomitant]
     Indication: BREAKTHROUGH PAIN
     Dosage: 18/325/TABLET/10/325/EVERY 8 HOURS/ORALLY
     Route: 048

REACTIONS (6)
  - FALL [None]
  - FOOT FRACTURE [None]
  - HEADACHE [None]
  - JOINT DISLOCATION [None]
  - MUSCULOSKELETAL PAIN [None]
  - PRODUCT QUALITY ISSUE [None]
